FAERS Safety Report 13268867 (Version 2)
Quarter: 2017Q1

REPORT INFORMATION
  Report Type: Spontaneous
  Country: BR (occurrence: BR)
  Receive Date: 20170224
  Receipt Date: 20170227
  Transmission Date: 20170428
  Serious: Yes (Hospitalization, Other)
  Sender: FDA-Public Use
  Company Number: BR-JNJFOC-20170220938

PATIENT
  Sex: Female

DRUGS (1)
  1. XARELTO [Suspect]
     Active Substance: RIVAROXABAN
     Indication: ATRIAL FIBRILLATION
     Route: 048
     Dates: start: 2014

REACTIONS (5)
  - Malaise [Unknown]
  - Blood bilirubin abnormal [Unknown]
  - Abdominal discomfort [Unknown]
  - Hepatitis [Recovering/Resolving]
  - Transaminases abnormal [Unknown]

NARRATIVE: CASE EVENT DATE: 20170220
